FAERS Safety Report 23200321 (Version 1)
Quarter: 2023Q4

REPORT INFORMATION
  Report Type: Spontaneous
  Country: ES (occurrence: ES)
  Receive Date: 20231118
  Receipt Date: 20231118
  Transmission Date: 20240109
  Serious: Yes (Death, Hospitalization)
  Sender: FDA-Public Use
  Company Number: ES-SA-2014SA095168

PATIENT
  Age: 68 Year
  Sex: Female
  Weight: 89 kg

DRUGS (26)
  1. IRINOTECAN [Suspect]
     Active Substance: IRINOTECAN
     Indication: Colorectal cancer metastatic
     Dosage: 334.8 MILLIGRAM, CYCLICAL
     Route: 041
     Dates: start: 20140611, end: 20140611
  2. IRINOTECAN [Suspect]
     Active Substance: IRINOTECAN
     Dosage: 334.8 MILLIGRAM, CYCLICAL
     Route: 041
     Dates: start: 20140714, end: 20140714
  3. AFLIBERCEPT [Suspect]
     Active Substance: AFLIBERCEPT
     Indication: Colorectal cancer metastatic
     Dosage: CYCLICAL
     Route: 041
     Dates: start: 20140714, end: 20140714
  4. AFLIBERCEPT [Suspect]
     Active Substance: AFLIBERCEPT
     Dosage: CYCLICAL
     Route: 041
     Dates: start: 20140630, end: 20140630
  5. LEUCOVORIN [Suspect]
     Active Substance: LEUCOVORIN\LEUCOVORIN CALCIUM
     Indication: Colorectal cancer metastatic
     Dosage: 744 MILLIGRAM, CYCLICAL
     Route: 041
     Dates: start: 20140611, end: 20140611
  6. LEUCOVORIN [Suspect]
     Active Substance: LEUCOVORIN\LEUCOVORIN CALCIUM
     Dosage: 744 MILLIGRAM, CYCLICAL
     Route: 041
     Dates: start: 20140714, end: 20140714
  7. FLUOROURACIL [Suspect]
     Active Substance: FLUOROURACIL
     Indication: Colorectal cancer metastatic
     Dosage: 1488 MILLIGRAM, CYCLICAL
     Route: 040
     Dates: start: 20140714, end: 20140714
  8. FLUOROURACIL [Suspect]
     Active Substance: FLUOROURACIL
     Dosage: 2232 MILLIGRAM, CYCLICAL
     Route: 041
     Dates: start: 20140714, end: 20140714
  9. FLUOROURACIL [Suspect]
     Active Substance: FLUOROURACIL
     Dosage: 2232 MILLIGRAM, CYCLICAL
     Route: 041
     Dates: start: 20140611, end: 20140611
  10. FLUOROURACIL [Suspect]
     Active Substance: FLUOROURACIL
     Dosage: 1488 MILLIGRAM, CYCLICAL
     Route: 040
     Dates: start: 20140611, end: 20140611
  11. LEUCOVORIN [Suspect]
     Active Substance: LEUCOVORIN\LEUCOVORIN CALCIUM
     Indication: Colorectal cancer metastatic
     Dosage: 744 MILLIGRAM, CYCLICAL
     Route: 042
     Dates: start: 20140714, end: 20140714
  12. LEUCOVORIN [Suspect]
     Active Substance: LEUCOVORIN\LEUCOVORIN CALCIUM
     Dosage: 744 MILLIGRAM, CYCLICAL
     Route: 042
     Dates: start: 20140611, end: 20140611
  13. DOPAMINE [Concomitant]
     Active Substance: DOPAMINE HYDROCHLORIDE
     Indication: Product used for unknown indication
     Dosage: ()
     Route: 065
     Dates: start: 20140725, end: 20140726
  14. OCTREOTIDE [Concomitant]
     Active Substance: OCTREOTIDE
     Indication: Product used for unknown indication
     Dosage: ()
     Route: 065
     Dates: start: 20140721, end: 20140724
  15. GRANULOCYTE COLONY-STIMULATING FACTOR NOS [Concomitant]
     Active Substance: GRANULOCYTE COLONY-STIMULATING FACTOR NOS
     Indication: Product used for unknown indication
     Dosage: ()
     Route: 065
     Dates: start: 20140725, end: 20140726
  16. HALOPERIDOL [Concomitant]
     Active Substance: HALOPERIDOL
     Indication: Product used for unknown indication
     Dosage: ()
     Route: 065
     Dates: start: 20140725, end: 20140726
  17. OMEPRAZOLE [Concomitant]
     Active Substance: OMEPRAZOLE
     Indication: Prophylaxis
     Dosage: ()
     Route: 065
     Dates: start: 20140721, end: 20140726
  18. METOCLOPRAMIDE [Concomitant]
     Active Substance: METOCLOPRAMIDE
     Indication: Product used for unknown indication
     Dosage: UNK
     Route: 065
     Dates: start: 20140619, end: 20140619
  19. METOCLOPRAMIDE [Concomitant]
     Active Substance: METOCLOPRAMIDE
     Dosage: UNK
     Route: 065
     Dates: start: 20140611, end: 20140721
  20. GRANISETRON [Concomitant]
     Active Substance: GRANISETRON
     Indication: Prophylaxis
     Dosage: ()
     Route: 065
     Dates: start: 20140611, end: 20140721
  21. MIDAZOLAM [Concomitant]
     Active Substance: MIDAZOLAM
     Indication: Product used for unknown indication
     Dosage: ()
     Route: 065
     Dates: start: 20140725, end: 20140726
  22. MEGESTROL ACETATE [Concomitant]
     Active Substance: MEGESTROL ACETATE
     Indication: Product used for unknown indication
     Dosage: ()
     Route: 065
     Dates: start: 20140714, end: 20140721
  23. MEGESTROL ACETATE [Concomitant]
     Active Substance: MEGESTROL ACETATE
     Dosage: UNK
     Route: 065
     Dates: start: 20140714, end: 20140721
  24. PRIMPERAN [Concomitant]
     Active Substance: METOCLOPRAMIDE HYDROCHLORIDE
     Indication: Product used for unknown indication
     Dosage: ()
     Route: 065
     Dates: start: 20140725, end: 20140726
  25. ATROPINE [Concomitant]
     Active Substance: ATROPINE\ATROPINE SULFATE
     Indication: Prophylaxis
     Dosage: ()
     Route: 065
     Dates: start: 20140611, end: 20140721
  26. LOPERAMIDE [Concomitant]
     Active Substance: LOPERAMIDE
     Indication: Product used for unknown indication
     Dosage: ()
     Route: 065
     Dates: start: 20140611, end: 20140721

REACTIONS (8)
  - Sepsis [Fatal]
  - Diarrhoea [Not Recovered/Not Resolved]
  - Asthenia [Not Recovered/Not Resolved]
  - Dyspnoea [Not Recovered/Not Resolved]
  - Abdominal pain [Not Recovered/Not Resolved]
  - Pyrexia [Recovered/Resolved]
  - Stomatitis [Not Recovered/Not Resolved]
  - Flatulence [Not Recovered/Not Resolved]

NARRATIVE: CASE EVENT DATE: 20140714
